FAERS Safety Report 9460594 (Version 1)
Quarter: 2013Q3

REPORT INFORMATION
  Report Type: Spontaneous
  Country: DE (occurrence: DE)
  Receive Date: 20130815
  Receipt Date: 20130815
  Transmission Date: 20140515
  Serious: Yes (Death, Other)
  Sender: FDA-Public Use
  Company Number: DE-ABBOTT-13P-062-1133811-00

PATIENT
  Age: 69 Year
  Sex: Male

DRUGS (1)
  1. SIXANTONE [Suspect]
     Indication: PROSTATE CANCER
     Route: 058
     Dates: start: 20120118, end: 20120522

REACTIONS (5)
  - Cardiac failure [Fatal]
  - Prostate cancer [Fatal]
  - Lymphoma [Unknown]
  - Blood creatinine increased [Unknown]
  - Lymphoedema [Unknown]
